FAERS Safety Report 19730814 (Version 1)
Quarter: 2021Q3

REPORT INFORMATION
  Report Type: Spontaneous
  Country: US (occurrence: US)
  Receive Date: 20210821
  Receipt Date: 20210821
  Transmission Date: 20211014
  Serious: Yes (Other)
  Sender: FDA-Public Use
  Company Number: NVSC2021US184878

PATIENT

DRUGS (5)
  1. ZOFRAN [Suspect]
     Active Substance: ONDANSETRON HYDROCHLORIDE
     Indication: PRODUCT USED FOR UNKNOWN INDICATION
     Route: 065
  2. MUCINEX [Interacting]
     Active Substance: GUAIFENESIN
     Indication: COUGH
  3. MUCINEX [Interacting]
     Active Substance: GUAIFENESIN
     Indication: INFLUENZA
     Dosage: UNK
     Route: 065
  4. PROZAC [Interacting]
     Active Substance: FLUOXETINE HYDROCHLORIDE
     Indication: PRODUCT USED FOR UNKNOWN INDICATION
     Route: 065
  5. MUCINEX [Interacting]
     Active Substance: GUAIFENESIN
     Indication: ABDOMINAL DISCOMFORT

REACTIONS (7)
  - Serotonin syndrome [Unknown]
  - Movement disorder [Unknown]
  - Drug interaction [Unknown]
  - Feeling abnormal [Unknown]
  - Panic attack [Unknown]
  - Feeding disorder [Unknown]
  - Visual impairment [Unknown]
